FAERS Safety Report 12402292 (Version 3)
Quarter: 2016Q3

REPORT INFORMATION
  Report Type: Report from Study
  Country: US (occurrence: US)
  Receive Date: 20160525
  Receipt Date: 20160804
  Transmission Date: 20161109
  Serious: No
  Sender: FDA-Public Use
  Company Number: US-AMGEN-USASP2016066121

PATIENT
  Age: 56 Year
  Sex: Female

DRUGS (1)
  1. ENBREL [Suspect]
     Active Substance: ETANERCEPT
     Indication: RHEUMATOID ARTHRITIS
     Dosage: 50 MG, QWK (SUNDAYS)
     Route: 065
     Dates: start: 20160508

REACTIONS (6)
  - Ill-defined disorder [Unknown]
  - Adverse reaction [Unknown]
  - Injection site erythema [Unknown]
  - Increased tendency to bruise [Unknown]
  - Injection site pruritus [Unknown]
  - Rash macular [Unknown]

NARRATIVE: CASE EVENT DATE: 2016
